FAERS Safety Report 5610930-0 (Version None)
Quarter: 2008Q1

REPORT INFORMATION
  Report Type: 
  Country: None (occurrence: None)
  Receive Date: 20080128
  Receipt Date: 20080110
  Transmission Date: 20080703
  Serious: Yes (Hospitalization)
  Sender: FDA-Public Use
  Company Number: SPV1-2007-04245

PATIENT
  Age: 24 Year
  Sex: Male
  Weight: 125.2 kg

DRUGS (1)
  1. LIALDA [Suspect]
     Indication: COLITIS ULCERATIVE
     Dosage: 2.4 G, 1X/DAY:QD, ORAL
     Route: 048
     Dates: start: 20070914, end: 20070920

REACTIONS (2)
  - EJECTION FRACTION DECREASED [None]
  - MYOCARDITIS [None]
